FAERS Safety Report 8487619-6 (Version None)
Quarter: 2012Q3

REPORT INFORMATION
  Report Type: 
  Country: None (occurrence: None)
  Receive Date: 20120705
  Receipt Date: 20120625
  Transmission Date: 20120928
  Serious: Yes (Hospitalization)
  Sender: FDA-Public Use
  Company Number: US-BAYER-201013983NA

PATIENT
  Age: 33 Year
  Sex: Female
  Weight: 135.46 kg

DRUGS (6)
  1. YASMIN [Suspect]
     Indication: CONTRACEPTION
     Route: 048
  2. AUGMENTIN '125' [Concomitant]
     Indication: RHINITIS ALLERGIC
  3. NASACORT [Concomitant]
     Indication: RHINITIS ALLERGIC
  4. NASACORT [Concomitant]
     Indication: SINUSITIS
  5. AUGMENTIN '125' [Concomitant]
     Indication: SINUSITIS
  6. YAZ [Suspect]
     Indication: CONTRACEPTION
     Route: 048
     Dates: start: 20050601, end: 20070101

REACTIONS (2)
  - PULMONARY EMBOLISM [None]
  - DEEP VEIN THROMBOSIS [None]
